FAERS Safety Report 15601246 (Version 1)
Quarter: 2018Q4

REPORT INFORMATION
  Report Type: Spontaneous
  Country: IN (occurrence: IN)
  Receive Date: 20181109
  Receipt Date: 20181109
  Transmission Date: 20190205
  Serious: Yes (Other)
  Sender: FDA-Public Use
  Company Number: IN-VIIV HEALTHCARE LIMITED-IN2018GSK201803

PATIENT
  Age: 39 Year
  Sex: Male

DRUGS (6)
  1. RISPERIDONE. [Concomitant]
     Active Substance: RISPERIDONE
     Dosage: 4 MG, UNK
  2. COTRIMOXAZOLE [Concomitant]
     Active Substance: SULFAMETHOXAZOLE\TRIMETHOPRIM
  3. LAMIVUDINE. [Suspect]
     Active Substance: LAMIVUDINE
     Indication: HIV INFECTION
  4. TENOFOVIR DISOPROXIL FUMARATE. [Suspect]
     Active Substance: TENOFOVIR DISOPROXIL FUMARATE
     Indication: HIV INFECTION
  5. EFAVIRENZ. [Suspect]
     Active Substance: EFAVIRENZ
     Indication: HIV INFECTION
     Dosage: UNK
  6. VALPROATE [Concomitant]
     Active Substance: VALPROIC ACID

REACTIONS (13)
  - Psychomotor retardation [Unknown]
  - Treatment noncompliance [Unknown]
  - Daydreaming [Unknown]
  - Sensory disturbance [Recovering/Resolving]
  - Memory impairment [Unknown]
  - Altered state of consciousness [Unknown]
  - Slow response to stimuli [Unknown]
  - Sluggishness [Recovering/Resolving]
  - Psychotic disorder [Unknown]
  - Irritability [Recovering/Resolving]
  - Illusion [Unknown]
  - Disturbance in attention [Unknown]
  - Thinking abnormal [Unknown]
